FAERS Safety Report 7213110-0 (Version None)
Quarter: 2010Q4

REPORT INFORMATION
  Report Type: 
  Country: None (occurrence: None)
  Receive Date: 20101229
  Receipt Date: 20101217
  Transmission Date: 20110411
  Serious: Yes (Disabling)
  Sender: FDA-Public Use
  Company Number: 2010EU005916

PATIENT
  Age: 67 Year
  Sex: Male
  Weight: 75 kg

DRUGS (7)
  1. PROGRAF [Suspect]
     Indication: RENAL TRANSPLANT
     Dosage: ORAL
     Route: 048
  2. MYCOPHENOLIC ACID [Suspect]
     Dosage: 360 MG, QID, ORAL
     Route: 048
  3. TAREG (VALSARTAN) [Concomitant]
  4. ATORVASTATIN CALCIUM [Concomitant]
  5. TEGRETOL [Concomitant]
  6. LEXOMIL (BROMAZEPAM) [Concomitant]
  7. ZOLPIDEM TARTRATE [Concomitant]

REACTIONS (1)
  - VIITH NERVE PARALYSIS [None]
